FAERS Safety Report 6944570-8 (Version None)
Quarter: 2010Q3

REPORT INFORMATION
  Report Type: 
  Country: None (occurrence: None)
  Receive Date: 20100827
  Receipt Date: 20100817
  Transmission Date: 20110219
  Serious: Yes (Other)
  Sender: FDA-Public Use
  Company Number: US-PFIZER INC-2010046985

PATIENT
  Sex: Female

DRUGS (6)
  1. CHANTIX [Suspect]
     Indication: SMOKING CESSATION THERAPY
     Dosage: 0.5 MG AND 1MG
     Route: 048
     Dates: start: 20080101, end: 20080601
  2. GLYBURIDE [Concomitant]
     Indication: DIABETES MELLITUS
     Dosage: UNK
     Dates: start: 20071201
  3. PERCOCET [Concomitant]
     Indication: PAIN
     Dosage: UNK
     Dates: start: 20080101, end: 20090901
  4. AMOXIL [Concomitant]
     Indication: OTITIS MEDIA
     Dosage: UNK
     Dates: start: 20080101, end: 20090101
  5. AMOXIL [Concomitant]
     Indication: TOOTH ABSCESS
  6. ALBUTEROL [Concomitant]
     Indication: ASTHMA
     Dosage: UNK
     Dates: start: 20080101, end: 20081101

REACTIONS (2)
  - DEPRESSION [None]
  - SUICIDE ATTEMPT [None]
